FAERS Safety Report 13464955 (Version 1)
Quarter: 2017Q2

REPORT INFORMATION
  Report Type: Spontaneous
  Country: US (occurrence: US)
  Receive Date: 20170420
  Receipt Date: 20170420
  Transmission Date: 20170830
  Serious: Yes (Other)
  Sender: FDA-Public Use
  Company Number: US-ROCHE-718764

PATIENT
  Age: 23 Year
  Sex: Male
  Weight: 87.5 kg

DRUGS (3)
  1. ACCUTANE [Suspect]
     Active Substance: ISOTRETINOIN
     Indication: ACNE
     Route: 065
     Dates: start: 198809, end: 198903
  2. ACCUTANE [Suspect]
     Active Substance: ISOTRETINOIN
     Route: 065
     Dates: start: 199109, end: 199203
  3. ACCUTANE [Suspect]
     Active Substance: ISOTRETINOIN
     Route: 065
     Dates: start: 1992, end: 1993

REACTIONS (5)
  - Gastrointestinal injury [Unknown]
  - Inflammatory bowel disease [Unknown]
  - Skin exfoliation [Unknown]
  - Colitis ulcerative [Unknown]
  - Headache [Unknown]

NARRATIVE: CASE EVENT DATE: 199707
